FAERS Safety Report 7719625-0 (Version None)
Quarter: 2011Q3

REPORT INFORMATION
  Report Type: 
  Country: None (occurrence: None)
  Receive Date: 20110830
  Receipt Date: 20110818
  Transmission Date: 20111222
  Serious: Yes (Other)
  Sender: FDA-Public Use
  Company Number: CA-GENENTECH-248174

PATIENT
  Sex: Male

DRUGS (2)
  1. OMALIZUMAB [Suspect]
     Indication: ASTHMA
     Dosage: 225 MG, Q2W
     Route: 058
     Dates: start: 20070504
  2. MEDICATION (UNK INGREDIENT) [Concomitant]
     Indication: ASTHMA

REACTIONS (8)
  - SINUSITIS [None]
  - ANOSMIA [None]
  - FATIGUE [None]
  - CHEST DISCOMFORT [None]
  - STRESS [None]
  - AGEUSIA [None]
  - NASOPHARYNGITIS [None]
  - ANXIETY [None]
